FAERS Safety Report 14900247 (Version 2)
Quarter: 2018Q2

REPORT INFORMATION
  Report Type: Spontaneous
  Country: PK (occurrence: PK)
  Receive Date: 20180516
  Receipt Date: 20180618
  Transmission Date: 20180711
  Serious: Yes (Hospitalization)
  Sender: FDA-Public Use
  Company Number: PK-LPDUSPRD-20180793

PATIENT
  Age: 52 Year
  Sex: Female
  Weight: 65 kg

DRUGS (6)
  1. NUBEROL FORTE [Concomitant]
     Dosage: 650 MG/50 MG
     Route: 065
     Dates: start: 20180424
  2. FERINJECT [Suspect]
     Active Substance: FERRIC CARBOXYMALTOSE
     Dosage: 500 MG
     Route: 042
     Dates: start: 20180426, end: 201804
  3. MOVAX [Concomitant]
     Dosage: 2 MG
     Route: 065
     Dates: start: 20180424
  4. FREEHALE [Concomitant]
     Dosage: 10 MG
     Route: 065
     Dates: start: 20180424
  5. BISLERI [Concomitant]
     Dosage: UNKNOWN
     Route: 065
     Dates: start: 20180424
  6. NEUROBIN [Concomitant]
     Dosage: UNKNOWN
     Route: 065
     Dates: start: 20180424

REACTIONS (12)
  - Nausea [Recovered/Resolved]
  - Stress [Recovered/Resolved]
  - Anxiety [Recovered/Resolved]
  - Hypotension [Recovered/Resolved]
  - Back pain [Recovered/Resolved]
  - Vomiting [Recovered/Resolved]
  - Pruritus [Recovered/Resolved]
  - Flushing [Recovered/Resolved]
  - Rash [Recovered/Resolved]
  - Purpura [Recovered/Resolved]
  - Myalgia [Recovered/Resolved]
  - Pyrexia [Recovered/Resolved]

NARRATIVE: CASE EVENT DATE: 20180426
